FAERS Safety Report 6509562-1 (Version None)
Quarter: 2009Q4

REPORT INFORMATION
  Report Type: 
  Country: None (occurrence: None)
  Receive Date: 20091222
  Receipt Date: 20091214
  Transmission Date: 20100525
  Serious: Yes (Other)
  Sender: FDA-Public Use
  Company Number: US-ASTRAZENECA-2006UW05878

PATIENT
  Age: 47 Year
  Sex: Female
  Weight: 93 kg

DRUGS (12)
  1. SEROQUEL [Suspect]
     Indication: SCHIZOPHRENIA
     Dosage: 300 MG IN A.M. + 300 MG IN P.M.
     Route: 048
     Dates: end: 20060301
  2. SEROQUEL [Suspect]
     Indication: BIPOLAR DISORDER
     Dosage: 300 MG IN A.M. + 300 MG IN P.M.
     Route: 048
     Dates: end: 20060301
  3. SEROQUEL [Suspect]
     Route: 048
     Dates: start: 20060101
  4. SEROQUEL [Suspect]
     Route: 048
     Dates: start: 20060101
  5. SEROQUEL [Suspect]
     Route: 048
     Dates: start: 20090101, end: 20090401
  6. SEROQUEL [Suspect]
     Route: 048
     Dates: start: 20090101, end: 20090401
  7. GLYBURIDE [Concomitant]
     Dates: start: 20040830, end: 20050106
  8. LITHIUM [Concomitant]
  9. XANAX [Concomitant]
  10. PRILOSEC [Concomitant]
     Route: 048
  11. TRILEPTAL [Concomitant]
     Dates: end: 20090101
  12. NITROGLYCERIN [Concomitant]
     Dosage: THREE TIMES A WEEK

REACTIONS (22)
  - ABDOMINAL PAIN UPPER [None]
  - ASTHENIA [None]
  - BONE DISORDER [None]
  - CEREBROVASCULAR ACCIDENT [None]
  - CHEST PAIN [None]
  - CONSTIPATION [None]
  - DEPRESSION [None]
  - DIABETES MELLITUS [None]
  - DIZZINESS [None]
  - DRY MOUTH [None]
  - DYSKINESIA [None]
  - GAIT DISTURBANCE [None]
  - HEADACHE [None]
  - MOOD ALTERED [None]
  - SOMNOLENCE [None]
  - SPEECH DISORDER [None]
  - SUICIDAL IDEATION [None]
  - THYROID DISORDER [None]
  - TIC [None]
  - TRANSIENT ISCHAEMIC ATTACK [None]
  - VISION BLURRED [None]
  - WEIGHT INCREASED [None]
